FAERS Safety Report 21344307 (Version 1)
Quarter: 2022Q3

REPORT INFORMATION
  Report Type: Spontaneous
  Country: FR (occurrence: FR)
  Receive Date: 20220916
  Receipt Date: 20220916
  Transmission Date: 20221026
  Serious: Yes (Life-Threatening, Hospitalization)
  Sender: FDA-Public Use
  Company Number: None

PATIENT
  Age: 68 Year
  Sex: Male

DRUGS (6)
  1. ALPRAZOLAM [Suspect]
     Active Substance: ALPRAZOLAM
     Indication: Product used for unknown indication
     Dosage: 4.75 MG (19 COMPRIM?S DE 0.25MG)
     Route: 048
     Dates: start: 20220816, end: 20220816
  2. ZOPICLONE [Suspect]
     Active Substance: ZOPICLONE
     Indication: Product used for unknown indication
     Dosage: 97.5 MG (13 COMPRIM?S DE 7.5MG)
     Route: 048
     Dates: start: 20220816, end: 20220816
  3. OLANZAPINE [Suspect]
     Active Substance: OLANZAPINE
     Indication: Product used for unknown indication
     Dosage: 140 MG (14 COMPRIM?S DE 10MG)
     Route: 048
     Dates: start: 20220816, end: 20220816
  4. CLOMIPRAMINE HYDROCHLORIDE [Suspect]
     Active Substance: CLOMIPRAMINE HYDROCHLORIDE
     Indication: Product used for unknown indication
     Dosage: 1500 MG (20 COMPRIM?S DE 75 MG)
     Route: 048
     Dates: start: 20220816, end: 20220816
  5. SERTRALINE HYDROCHLORIDE [Suspect]
     Active Substance: SERTRALINE HYDROCHLORIDE
     Indication: Product used for unknown indication
     Dosage: 150 MG, TABLET (6 COMPRIM?S DE 25MG
     Route: 048
     Dates: start: 20220816, end: 20220816
  6. PROTHIADEN [Suspect]
     Active Substance: DOTHIEPIN HYDROCHLORIDE
     Indication: Product used for unknown indication
     Dosage: 2250 MG (30 COMPRIM?S DE 75 MG)
     Route: 048
     Dates: start: 20220816, end: 20220816

REACTIONS (4)
  - Coma [Recovered/Resolved]
  - Bezoar [Recovered/Resolved]
  - Electrocardiogram QT prolonged [Recovered/Resolved]
  - Psychiatric symptom [Recovered/Resolved]

NARRATIVE: CASE EVENT DATE: 20220816
